FAERS Safety Report 8997052 (Version 2)
Quarter: 2013Q1

REPORT INFORMATION
  Report Type: Spontaneous
  Country: US (occurrence: US)
  Receive Date: 20130104
  Receipt Date: 20130110
  Transmission Date: 20140127
  Serious: No
  Sender: FDA-Public Use
  Company Number: US-009507513-1212USA010445

PATIENT
  Age: 21 Year
  Sex: Female
  Weight: 79.82 kg

DRUGS (1)
  1. IMPLANON [Suspect]
     Indication: CONTRACEPTION
     Dosage: 1 IMPLANT UP TO THREE YEARS
     Dates: start: 20121212

REACTIONS (4)
  - Metrorrhagia [Unknown]
  - Implant site irritation [Unknown]
  - Implant site erythema [Unknown]
  - Implant site pruritus [Unknown]
